FAERS Safety Report 6253248-8 (Version None)
Quarter: 2009Q3

REPORT INFORMATION
  Report Type: 
  Country: None (occurrence: None)
  Receive Date: 20090701
  Receipt Date: 20090623
  Transmission Date: 20100115
  Serious: Yes (Hospitalization)
  Sender: FDA-Public Use
  Company Number: FR-GENENTECH-278587

PATIENT
  Sex: Female

DRUGS (10)
  1. BLINDED ANTI-CD40 [Suspect]
     Indication: DIFFUSE LARGE B-CELL LYMPHOMA
     Dosage: 8 MG/KG, 1/WEEK
     Route: 042
     Dates: start: 20090114
  2. BLINDED PLACEBO [Suspect]
     Indication: DIFFUSE LARGE B-CELL LYMPHOMA
     Dosage: 8 MG/KG, 1/WEEK
     Route: 042
     Dates: start: 20090114
  3. BLINDED ANTI-CD40 [Suspect]
     Dosage: 4 MG/KG, X1
     Route: 042
     Dates: start: 20090109, end: 20090109
  4. BLINDED PLACEBO [Suspect]
     Dosage: 4 MG/KG, X1
     Route: 042
     Dates: start: 20090109, end: 20090109
  5. BLINDED ANTI-CD40 [Suspect]
     Dosage: 2 MG/KG, X1
     Route: 042
     Dates: start: 20090106, end: 20090106
  6. BLINDED PLACEBO [Suspect]
     Dosage: 2 MG/KG, X1
     Route: 042
     Dates: start: 20090106, end: 20090106
  7. RITUXAN [Suspect]
     Indication: DIFFUSE LARGE B-CELL LYMPHOMA
     Dosage: 375 MG/M2, Q3W
     Route: 042
     Dates: start: 20090105
  8. ETOPOSIDE [Suspect]
     Indication: DIFFUSE LARGE B-CELL LYMPHOMA
     Dosage: 100 MG/M2, Q3W
     Route: 042
     Dates: start: 20090107
  9. CARBOPLATIN [Suspect]
     Indication: DIFFUSE LARGE B-CELL LYMPHOMA
     Dosage: 5 MG/ML, Q3W
     Route: 042
     Dates: start: 20090108
  10. IFOSFAMIDE [Suspect]
     Indication: DIFFUSE LARGE B-CELL LYMPHOMA
     Dosage: 5 G/M2, Q3W
     Route: 042
     Dates: start: 20090108

REACTIONS (13)
  - ALLERGIC TRANSFUSION REACTION [None]
  - ALPHA HAEMOLYTIC STREPTOCOCCAL INFECTION [None]
  - ATRIAL FIBRILLATION [None]
  - BACTERIAL INFECTION [None]
  - CARDIAC FAILURE [None]
  - CARDIOMEGALY [None]
  - FEBRILE NEUTROPENIA [None]
  - HELICOBACTER INFECTION [None]
  - INFECTION [None]
  - KLEBSIELLA INFECTION [None]
  - PANCYTOPENIA [None]
  - RENAL FAILURE [None]
  - SMALL INTESTINAL OBSTRUCTION [None]
